FAERS Safety Report 4326257-3 (Version None)
Quarter: 2004Q1

REPORT INFORMATION
  Report Type: 
  Country: None (occurrence: None)
  Receive Date: 20040324
  Receipt Date: 20040309
  Transmission Date: 20041129
  Serious: Yes (Disabling)
  Sender: FDA-Public Use
  Company Number: J200401034

PATIENT
  Age: 92 Year
  Sex: Female

DRUGS (5)
  1. (MYSLEE) ZOLPIDEM TABLET 10MG [Suspect]
     Indication: INSOMNIA
     Dosage: 10 MG PO
     Route: 048
     Dates: start: 20030518, end: 20030704
  2. FAMOTIDINE [Concomitant]
  3. MUCOSTA (RABAMIPIDE) [Concomitant]
  4. GASMOTIN (MOSAPRIDE CITRATE) [Concomitant]
  5. SELBEX (TEPRENONE) [Concomitant]

REACTIONS (15)
  - ANOREXIA [None]
  - BLOOD ALBUMIN DECREASED [None]
  - BLOOD CREATININE INCREASED [None]
  - BLOOD PRESSURE DECREASED [None]
  - BLOOD UREA INCREASED [None]
  - DELIRIUM [None]
  - DISORIENTATION [None]
  - GASTRIC ULCER HAEMORRHAGE [None]
  - HAEMATOCRIT DECREASED [None]
  - HAEMOGLOBIN DECREASED [None]
  - MALNUTRITION [None]
  - PROTEIN TOTAL DECREASED [None]
  - PROTEIN URINE PRESENT [None]
  - RED BLOOD CELL COUNT DECREASED [None]
  - WHITE BLOOD CELL COUNT DECREASED [None]
